FAERS Safety Report 18212819 (Version 1)
Quarter: 2020Q3

REPORT INFORMATION
  Report Type: Spontaneous
  Country: BR (occurrence: BR)
  Receive Date: 20200831
  Receipt Date: 20200831
  Transmission Date: 20201103
  Serious: Yes (Other)
  Sender: FDA-Public Use
  Company Number: BR-GLAXOSMITHKLINE-BR2020AMR171251

PATIENT
  Sex: Male

DRUGS (1)
  1. SERETIDE [Suspect]
     Active Substance: FLUTICASONE PROPIONATE\SALMETEROL XINAFOATE
     Indication: RESPIRATORY DISORDER
     Dosage: UNK

REACTIONS (6)
  - Pyrexia [Unknown]
  - COVID-19 [Unknown]
  - Pneumonia [Unknown]
  - Atelectasis [Unknown]
  - Bronchiectasis [Unknown]
  - Gastrointestinal disorder [Unknown]
